FAERS Safety Report 12957910 (Version 1)
Quarter: 2016Q4

REPORT INFORMATION
  Report Type: Report from Study
  Country: None (occurrence: VE)
  Receive Date: 20161118
  Receipt Date: 20161118
  Transmission Date: 20170207
  Serious: Yes (Hospitalization)
  Sender: FDA-Public Use
  Company Number: VE-ABBVIE-16P-178-1786441-00

PATIENT
  Age: 69 Year
  Sex: Female

DRUGS (3)
  1. LOSARTAN POTASSIUM. [Concomitant]
     Active Substance: LOSARTAN POTASSIUM
     Indication: PRODUCT USED FOR UNKNOWN INDICATION
  2. KETOPROFENO [Concomitant]
     Indication: PRODUCT USED FOR UNKNOWN INDICATION
  3. ZEMPLAR [Suspect]
     Active Substance: PARICALCITOL
     Indication: NEPHROPATHY
     Route: 065
     Dates: start: 20150130, end: 20161031

REACTIONS (1)
  - Neoplasm [Recovering/Resolving]

NARRATIVE: CASE EVENT DATE: 20161031
